FAERS Safety Report 9076178 (Version 1)
Quarter: 2013Q1

REPORT INFORMATION
  Report Type: Report from Study
  Country: US (occurrence: US)
  Receive Date: 20130131
  Receipt Date: 20130131
  Transmission Date: 20140127
  Serious: No
  Sender: FDA-Public Use
  Company Number: US-ABBOTT-12P-163-1002646-00

PATIENT
  Sex: Female
  Weight: 98.52 kg

DRUGS (1)
  1. HUMIRA [Suspect]
     Indication: CROHN^S DISEASE
     Dates: start: 2007

REACTIONS (5)
  - Malaise [Not Recovered/Not Resolved]
  - Cough [Not Recovered/Not Resolved]
  - Oral mucosal blistering [Recovered/Resolved]
  - Oropharyngeal pain [Recovered/Resolved]
  - Laryngitis [Recovered/Resolved]
